FAERS Safety Report 5394448-9 (Version None)
Quarter: 2007Q3

REPORT INFORMATION
  Report Type: 
  Country: None (occurrence: None)
  Receive Date: 20070723
  Receipt Date: 20070605
  Transmission Date: 20080115
  Serious: No
  Sender: FDA-Public Use
  Company Number: US-AMGEN-US227929

PATIENT
  Sex: Male

DRUGS (5)
  1. VECTIBIX [Suspect]
     Indication: DRUG USE FOR UNKNOWN INDICATION
     Route: 065
     Dates: start: 20070101
  2. FLUOROURACIL [Concomitant]
     Route: 065
  3. IRINOTECAN HCL [Concomitant]
     Route: 065
  4. LEUCOVORIN CALCIUM [Concomitant]
     Route: 065
  5. AVASTIN [Concomitant]
     Route: 065

REACTIONS (1)
  - PRURITUS [None]
